FAERS Safety Report 5606691-1 (Version None)
Quarter: 2008Q1

REPORT INFORMATION
  Report Type: 
  Country: None (occurrence: None)
  Receive Date: 20080129
  Receipt Date: 20070208
  Transmission Date: 20080703
  Serious: Yes (Other)
  Sender: FDA-Public Use
  Company Number: A0636194A

PATIENT
  Sex: Male

DRUGS (1)
  1. LAMIVUDINE [Suspect]

REACTIONS (3)
  - BLOOD GLUCOSE INCREASED [None]
  - LACTIC ACIDOSIS [None]
  - PANCREATITIS [None]
